FAERS Safety Report 9514595 (Version 3)
Quarter: 2014Q2

REPORT INFORMATION
  Report Type: Report from Study
  Country: US (occurrence: US)
  Receive Date: 20130911
  Receipt Date: 20140409
  Transmission Date: 20141212
  Serious: Yes (Life-Threatening, Hospitalization)
  Sender: FDA-Public Use
  Company Number: BE-009507513-1309BEL002469

PATIENT
  Age: 54 Year
  Sex: Female
  Weight: 82.4 kg

DRUGS (11)
  1. TEMOZOLOMIDE [Suspect]
     Indication: GLIOMA
     Dosage: 6610.0MG, CONCURRENT: 75 MG/M2/D, DURING RT
     Route: 048
     Dates: start: 20130514, end: 20130628
  2. TEMOZOLOMIDE [Suspect]
     Dosage: 1950.0 MG, ADJUVANT: 150-200 MG/M2/D, D1-5 (EVERY 28 DAYS)
     Route: 048
     Dates: start: 20130801, end: 20130902
  3. PANTOPRAZOLE [Concomitant]
     Indication: GASTROOESOPHAGEAL REFLUX DISEASE
     Dosage: 1 DF, QD
     Route: 048
  4. ZOLPIDEM TARTRATE [Concomitant]
     Indication: SOMNOLENCE
     Dosage: 5 MG, HS, PRN
     Route: 048
     Dates: start: 20130815, end: 20130902
  5. DOCUSATE SODIUM [Concomitant]
     Indication: FAECES HARD
     Dosage: 100 MG, PRN, BID
     Route: 048
     Dates: start: 20130811
  6. DEXAMETHASONE [Concomitant]
     Indication: BRAIN OEDEMA
     Dosage: 4 MG, BID
     Route: 048
     Dates: start: 20130826, end: 20130905
  7. ONDANSETRON [Concomitant]
     Indication: NAUSEA
     Dosage: 8 MG, BEFORE TAKING TEMODAL
     Route: 048
     Dates: start: 20130829
  8. PROMETHAZINE [Concomitant]
     Indication: NAUSEA
     Dosage: 1 DF, PRN, Q6H
     Route: 054
     Dates: end: 20130906
  9. PROMETHAZINE [Concomitant]
     Indication: NAUSEA
     Dosage: 25 MG, BEFORE TAKING TEMODAL
     Route: 048
  10. MAXALT [Concomitant]
     Indication: MIGRAINE
     Dosage: 10 MG, PRN,Q4H-Q6H
     Route: 048
  11. PHRENILIN [Concomitant]
     Indication: HEADACHE
     Dosage: 1 DF, PRN, Q4H-Q6H
     Route: 048

REACTIONS (1)
  - Brain oedema [Recovered/Resolved]
